FAERS Safety Report 4408386-9 (Version None)
Quarter: 2004Q3

REPORT INFORMATION
  Report Type: 
  Country: None (occurrence: None)
  Receive Date: 20040722
  Receipt Date: 20040709
  Transmission Date: 20050211
  Serious: Yes (Other)
  Sender: FDA-Public Use
  Company Number: 2004EU001358

PATIENT
  Age: 3 Year
  Sex: Female

DRUGS (1)
  1. PROGRAF [Suspect]
     Indication: NEPHROTIC SYNDROME

REACTIONS (1)
  - ELECTROCARDIOGRAM QT PROLONGED [None]
